FAERS Safety Report 7461832-9 (Version None)
Quarter: 2011Q2

REPORT INFORMATION
  Report Type: 
  Country: None (occurrence: None)
  Receive Date: 20110506
  Receipt Date: 20110215
  Transmission Date: 20111010
  Serious: Yes (Hospitalization)
  Sender: FDA-Public Use
  Company Number: US-BAYER-2011-015162

PATIENT
  Sex: Male
  Weight: 92.4 kg

DRUGS (7)
  1. GAS X [Concomitant]
  2. SORAFENIB (RAF KINASE INHIBITOR) [Suspect]
     Dosage: 400 MG, BID
     Route: 048
     Dates: start: 20110202, end: 20110211
  3. REGLAN [Concomitant]
  4. FISH OIL [Concomitant]
     Indication: SUPPLEMENTATION THERAPY
     Dosage: UNK
  5. SYNTHROID [Concomitant]
     Indication: HYPOTHYROIDISM
  6. OXYCODONE [Concomitant]
  7. OXYCONTIN [Concomitant]

REACTIONS (3)
  - PAIN [None]
  - FEBRILE NEUTROPENIA [None]
  - OROPHARYNGEAL PAIN [None]
